FAERS Safety Report 17478505 (Version 1)
Quarter: 2020Q1

REPORT INFORMATION
  Report Type: Spontaneous
  Country: JP (occurrence: JP)
  Receive Date: 20200228
  Receipt Date: 20200228
  Transmission Date: 20200409
  Serious: Yes (Death, Disabling)
  Sender: FDA-Public Use
  Company Number: JP-BAYER-2020-034732

PATIENT
  Age: 77 Year
  Sex: Female
  Weight: 36 kg

DRUGS (11)
  1. XYLOCAINE [Concomitant]
     Active Substance: LIDOCAINE HYDROCHLORIDE
  2. STIVARGA [Suspect]
     Active Substance: REGORAFENIB
     Indication: METASTASES TO LIVER
     Dosage: 80 MG, QD
     Route: 048
     Dates: start: 20191021, end: 20191023
  3. LOXOPROFEN [Concomitant]
     Active Substance: LOXOPROFEN
  4. KERATINAMIN KOWA [UREA] [Concomitant]
  5. AMLODIPINE OD TYK [Concomitant]
     Dosage: DAILY DOSE 2.5 MG
  6. LOPERAMIDE [Concomitant]
     Active Substance: LOPERAMIDE
     Dosage: UNK
     Dates: start: 20191016
  7. DIACORT [Concomitant]
     Active Substance: DIFLORASONE DIACETATE
  8. STIVARGA [Suspect]
     Active Substance: REGORAFENIB
     Indication: RECTAL CANCER METASTATIC
     Dosage: 80 MG, QD
     Route: 048
     Dates: start: 20191010, end: 20191017
  9. HEPARINOID [Concomitant]
     Active Substance: CHONDROITIN SULFATE (BOVINE)
  10. AZ [AZITHROMYCIN] [Concomitant]
  11. MYSER [DIFLUPREDNATE] [Concomitant]

REACTIONS (13)
  - Gangrene [Recovered/Resolved with Sequelae]
  - Malaise [None]
  - Diarrhoea [None]
  - Skin discolouration [Recovered/Resolved with Sequelae]
  - Respiratory disorder [Fatal]
  - Blood pressure increased [None]
  - Palmar-plantar erythrodysaesthesia syndrome [None]
  - Headache [None]
  - Nausea [None]
  - Peripheral circulatory failure [Recovered/Resolved with Sequelae]
  - Oedema peripheral [Recovered/Resolved with Sequelae]
  - Pain in extremity [Recovered/Resolved with Sequelae]
  - Weight increased [None]

NARRATIVE: CASE EVENT DATE: 20191016
